FAERS Safety Report 4854031-8 (Version None)
Quarter: 2005Q4

REPORT INFORMATION
  Report Type: 
  Country: None (occurrence: None)
  Receive Date: 20051213
  Receipt Date: 20051208
  Transmission Date: 20060501
  Serious: Yes (Hospitalization)
  Sender: FDA-Public Use
  Company Number: TPA2005A01003

PATIENT
  Age: 69 Year
  Sex: Male
  Weight: 121.564 kg

DRUGS (20)
  1. ACTOS [Suspect]
     Indication: DIABETES MELLITUS
     Dosage: 1 IN 1 D, PER ORAL
     Route: 048
     Dates: end: 20050808
  2. BYETTA [Suspect]
     Indication: DIABETES MELLITUS
     Dosage: 5 MCG, 2 IN 1 D, SUBCUTANEOUS
     Route: 058
     Dates: start: 20050808, end: 20050813
  3. GLUCOPHAGE [Concomitant]
  4. HUMULIN NPH (INSULIN HUMAN INJECTION, ISOPHANE) (INJECTION) [Concomitant]
  5. PAXIL [Concomitant]
  6. PRIMIDONE [Concomitant]
  7. TOPROL-XL [Concomitant]
  8. PLAVIX [Concomitant]
  9. ECOTRIN (ACETYLSALICYLIC ACID) [Concomitant]
  10. ATIVAN [Concomitant]
  11. ZETIA [Concomitant]
  12. REMICADE [Concomitant]
  13. FLOMAX [Concomitant]
  14. SYNTHROID [Concomitant]
  15. AVODART [Concomitant]
  16. NEURONTIN [Concomitant]
  17. TEMAZEPAM [Concomitant]
  18. ADVIL [Concomitant]
  19. MECLIZINE [Concomitant]
  20. ASPIRIN [Concomitant]

REACTIONS (10)
  - ASTHENIA [None]
  - BLOOD GLUCOSE INCREASED [None]
  - BLOOD LACTIC ACID INCREASED [None]
  - BOWEL SOUNDS ABNORMAL [None]
  - CHEST PAIN [None]
  - DIFFICULTY IN WALKING [None]
  - FALL [None]
  - HEAD INJURY [None]
  - NECK INJURY [None]
  - PANCREATITIS [None]
